FAERS Safety Report 7906532-3 (Version None)
Quarter: 2011Q4

REPORT INFORMATION
  Report Type: 
  Country: None (occurrence: None)
  Receive Date: 20111110
  Receipt Date: 20111031
  Transmission Date: 20120403
  Serious: Yes (Hospitalization)
  Sender: FDA-Public Use
  Company Number: US-JNJFOC-20110908744

PATIENT
  Sex: Female
  Weight: 61.24 kg

DRUGS (12)
  1. METHOTREXATE [Concomitant]
     Indication: ARTHRITIS
  2. NIACIN [Concomitant]
     Indication: MEDICAL DIET
  3. METFORMIN HCL [Concomitant]
     Indication: DIABETES MELLITUS
     Route: 048
  4. NEXIUM [Concomitant]
     Indication: GASTROOESOPHAGEAL REFLUX DISEASE
     Route: 048
  5. CALCIUM [Concomitant]
     Indication: MEDICAL DIET
  6. LISINOPRIL [Concomitant]
     Indication: BLOOD PRESSURE ABNORMAL
     Route: 048
  7. REMICADE [Suspect]
     Indication: RHEUMATOID ARTHRITIS
     Route: 042
     Dates: start: 20080101
  8. ANTIDEPRESSANT [Concomitant]
     Indication: DEPRESSION
     Route: 048
  9. TRICOR [Concomitant]
     Indication: BLOOD CHOLESTEROL ABNORMAL
     Route: 048
  10. FOLIC ACID [Concomitant]
     Indication: MEDICAL DIET
  11. ZYRTEC [Concomitant]
     Indication: MULTIPLE ALLERGIES
     Route: 048
  12. AN UNKNOWN MEDICATION [Concomitant]
     Indication: ARTHROPATHY

REACTIONS (2)
  - PNEUMONIA [None]
  - PULMONARY MYCOSIS [None]
